FAERS Safety Report 9696640 (Version 1)
Quarter: 2013Q4

REPORT INFORMATION
  Report Type: Spontaneous
  Country: AU (occurrence: AU)
  Receive Date: 20131119
  Receipt Date: 20131119
  Transmission Date: 20140711
  Serious: Yes (Other)
  Sender: FDA-Public Use
  Company Number: AU-009507513-1311AUS006302

PATIENT
  Age: 23 Year
  Sex: Female

DRUGS (6)
  1. RIBAVIRIN [Suspect]
     Indication: HEPATIC CIRRHOSIS
     Dosage: UNK
     Route: 048
     Dates: start: 20130502
  2. RIBAVIRIN [Suspect]
     Indication: HEPATITIS C
  3. INTERFERON ALFA-2B [Suspect]
     Indication: HEPATIC CIRRHOSIS
     Dosage: 180 MICROGRAM, QW
     Route: 058
     Dates: start: 20130502
  4. INTERFERON ALFA-2B [Suspect]
     Indication: HEPATITIS C
  5. INCIVO [Suspect]
     Indication: HEPATIC CIRRHOSIS
     Dosage: 750 MG, TID
     Route: 048
     Dates: start: 20130502, end: 20130809
  6. INCIVO [Suspect]
     Indication: HEPATITIS C

REACTIONS (1)
  - Deafness [Unknown]
